FAERS Safety Report 13400713 (Version 3)
Quarter: 2018Q1

REPORT INFORMATION
  Report Type: Report from Study
  Country: IL (occurrence: IL)
  Receive Date: 20170404
  Receipt Date: 20180130
  Transmission Date: 20180508
  Serious: Yes (Other)
  Sender: FDA-Public Use
  Company Number: PHHY2017IL047671

PATIENT
  Age: 33 Year
  Sex: Female
  Weight: 62 kg

DRUGS (7)
  1. SANDOSTATIN LAR DEPOT [Suspect]
     Active Substance: OCTREOTIDE ACETATE
     Dosage: 30 MG, QMO (Q4W)
     Route: 030
     Dates: start: 20141223, end: 20160226
  2. SANDOSTATIN LAR DEPOT [Suspect]
     Active Substance: OCTREOTIDE ACETATE
     Indication: ACROMEGALY
     Dosage: UNK
     Route: 030
     Dates: start: 20100907
  3. SANDOSTATIN LAR DEPOT [Suspect]
     Active Substance: OCTREOTIDE ACETATE
     Dosage: 30 MG, QMO (Q4W)
     Route: 030
     Dates: start: 20170319
  4. HIDROCORTISON [Concomitant]
     Active Substance: HYDROCORTISONE
     Indication: PRODUCT USED FOR UNKNOWN INDICATION
     Dosage: 25 MG, QD
     Route: 065
  5. SANDOSTATIN LAR DEPOT [Suspect]
     Active Substance: OCTREOTIDE ACETATE
     Dosage: 30 MG, QMO (Q4W)
     Route: 030
     Dates: end: 20170924
  6. SANDOSTATIN LAR DEPOT [Suspect]
     Active Substance: OCTREOTIDE ACETATE
     Dosage: 30 MG, QMO (Q4W)
     Route: 030
     Dates: start: 20100920
  7. FLORINEF ACETATE [Concomitant]
     Active Substance: FLUDROCORTISONE ACETATE
     Indication: PRODUCT USED FOR UNKNOWN INDICATION
     Dosage: 0.1 MG, QD
     Route: 065

REACTIONS (7)
  - Dysuria [Recovered/Resolved]
  - Normal newborn [Unknown]
  - Vaginal prolapse [Recovered/Resolved]
  - Oligohydramnios [Unknown]
  - Patella fracture [Not Recovered/Not Resolved]
  - Maternal exposure before pregnancy [Unknown]
  - Delivery [Unknown]

NARRATIVE: CASE EVENT DATE: 20170121
